FAERS Safety Report 10554475 (Version 3)
Quarter: 2014Q4

REPORT INFORMATION
  Report Type: Other
  Country: IT (occurrence: IT)
  Receive Date: 20141030
  Receipt Date: 20141205
  Transmission Date: 20150529
  Serious: Yes (Life-Threatening, Hospitalization, Other)
  Sender: FDA-Public Use
  Company Number: IT-TAKEDA-2014TEU009436

PATIENT
  Age: 47 Year
  Sex: Female

DRUGS (1)
  1. LANSOX [Suspect]
     Active Substance: LANSOPRAZOLE
     Indication: ABDOMINAL PAIN UPPER
     Dosage: 30 MG, TOTAL
     Route: 048
     Dates: start: 20141018, end: 20141018

REACTIONS (1)
  - Anaphylactic shock [Recovered/Resolved]

NARRATIVE: CASE EVENT DATE: 20141018
